FAERS Safety Report 7055310-9 (Version None)
Quarter: 2010Q4

REPORT INFORMATION
  Report Type: 
  Country: None (occurrence: None)
  Receive Date: 20101021
  Receipt Date: 20101015
  Transmission Date: 20110411
  Serious: Yes (Other)
  Sender: FDA-Public Use
  Company Number: BR-GENZYME-CERZ-1001159

PATIENT

DRUGS (1)
  1. CEREZYME [Suspect]
     Indication: GAUCHER'S DISEASE
     Dosage: 1600 U, Q2W
     Route: 042
     Dates: start: 19990526

REACTIONS (5)
  - LARYNGEAL OEDEMA [None]
  - OEDEMA PERIPHERAL [None]
  - ORAL MUCOSAL ERYTHEMA [None]
  - THROAT IRRITATION [None]
  - URTICARIA [None]
